FAERS Safety Report 11939228 (Version 2)
Quarter: 2016Q1

REPORT INFORMATION
  Report Type: Spontaneous
  Country: CO (occurrence: CO)
  Receive Date: 20160122
  Receipt Date: 20160223
  Transmission Date: 20160526
  Serious: Yes (Other)
  Sender: FDA-Public Use
  Company Number: CO-JNJFOC-20151218765

PATIENT
  Age: 67 Year
  Sex: Male
  Weight: 52 kg

DRUGS (1)
  1. IMBRUVICA [Suspect]
     Active Substance: IBRUTINIB
     Indication: CHRONIC LYMPHOCYTIC LEUKAEMIA
     Route: 048
     Dates: start: 20151211

REACTIONS (7)
  - Haematoma [Recovered/Resolved]
  - Petechiae [Not Recovered/Not Resolved]
  - Oral herpes [Unknown]
  - Basal cell carcinoma [Not Recovered/Not Resolved]
  - Dysuria [Not Recovered/Not Resolved]
  - Tongue haematoma [Unknown]
  - Arthralgia [Not Recovered/Not Resolved]

NARRATIVE: CASE EVENT DATE: 20151215
